FAERS Safety Report 11005171 (Version 2)
Quarter: 2016Q2

REPORT INFORMATION
  Report Type: Spontaneous
  Country: DK (occurrence: DK)
  Receive Date: 20150409
  Receipt Date: 20160607
  Transmission Date: 20160815
  Serious: Yes (Hospitalization)
  Sender: FDA-Public Use
  Company Number: PHHY2015DK038410

PATIENT
  Age: 20 Year
  Sex: Female

DRUGS (1)
  1. MALONETTA [Suspect]
     Active Substance: ETHINYL ESTRADIOL\LEVONORGESTREL
     Indication: CONTRACEPTION
     Dosage: 1 DF, QD
     Route: 048
     Dates: start: 2012, end: 20121119

REACTIONS (5)
  - Chest discomfort [Recovered/Resolved]
  - Pulmonary thrombosis [Recovered/Resolved with Sequelae]
  - Anxiety [Not Recovered/Not Resolved]
  - Dyspnoea [Recovering/Resolving]
  - Chest pain [Recovered/Resolved]

NARRATIVE: CASE EVENT DATE: 20121031
